FAERS Safety Report 9666233 (Version 5)
Quarter: 2015Q2

REPORT INFORMATION
  Report Type: Report from Study
  Country: US (occurrence: US)
  Receive Date: 20131104
  Receipt Date: 20150427
  Transmission Date: 20150821
  Serious: Yes (Death, Hospitalization, Other)
  Sender: FDA-Public Use
  Company Number: US-ROCHE-1291446

PATIENT
  Age: 53 Year
  Sex: Male
  Weight: 76.3 kg

DRUGS (56)
  1. RITUXIMAB [Suspect]
     Active Substance: RITUXIMAB
     Route: 042
     Dates: start: 20130912
  2. COLACE [Concomitant]
     Active Substance: DOCUSATE SODIUM
     Indication: CONSTIPATION
     Route: 048
  3. OSCAL [Concomitant]
     Active Substance: CALCIUM CARBONATE
     Dosage: 500/200 UNITS
     Route: 048
  4. TUSSIONEX PENNKINETIC [Concomitant]
     Active Substance: CHLORPHENIRAMINE\HYDROCODONE
     Indication: COUGH
     Dosage: 8/10 MG/5 ML
     Route: 048
  5. FLAGYL [Concomitant]
     Active Substance: METRONIDAZOLE\METRONIDAZOLE HYDROCHLORIDE
  6. LASIX [Concomitant]
     Active Substance: FUROSEMIDE
  7. PROCHLORPERAZINE. [Concomitant]
     Active Substance: PROCHLORPERAZINE
  8. ATIVAN [Concomitant]
     Active Substance: LORAZEPAM
  9. RITUXIMAB [Suspect]
     Active Substance: RITUXIMAB
     Route: 042
     Dates: start: 20130103
  10. RITUXIMAB [Suspect]
     Active Substance: RITUXIMAB
     Route: 042
     Dates: start: 20130103
  11. DAPSONE. [Concomitant]
     Active Substance: DAPSONE
  12. DDAVP [Concomitant]
     Active Substance: DESMOPRESSIN ACETATE
     Route: 048
  13. DEXAMETHASONE. [Concomitant]
     Active Substance: DEXAMETHASONE
     Route: 065
  14. NOXAFIL [Concomitant]
     Active Substance: POSACONAZOLE
     Route: 065
  15. CYTARABIN [Concomitant]
     Active Substance: CYTARABINE
  16. PROGRAF [Concomitant]
     Active Substance: TACROLIMUS\TACROLIMUS ANHYDROUS
     Route: 065
     Dates: start: 20130702, end: 20130928
  17. BUDESONIDE. [Concomitant]
     Active Substance: BUDESONIDE
     Route: 065
     Dates: start: 20140612
  18. IMODIUM [Concomitant]
     Active Substance: LOPERAMIDE HYDROCHLORIDE
  19. LOMOTIL (UNITED STATES) [Concomitant]
  20. MOVIPREP [Concomitant]
     Active Substance: ASCORBIC ACID\POLYETHYLENE GLYCOL 3350\POTASSIUM CHLORIDE\SODIUM ASCORBATE\SODIUM CHLORIDE\SODIUM SULFATE
  21. DECITABINE. [Concomitant]
     Active Substance: DECITABINE
  22. RITUXIMAB [Suspect]
     Active Substance: RITUXIMAB
     Route: 042
     Dates: start: 20131217
  23. SYNTHROID [Concomitant]
     Active Substance: LEVOTHYROXINE SODIUM
     Route: 048
  24. ZOVIRAX [Concomitant]
     Active Substance: ACYCLOVIR
  25. METHOTREXATE [Concomitant]
     Active Substance: METHOTREXATE
     Route: 065
     Dates: start: 20120127, end: 20120206
  26. KLOR-CON [Concomitant]
     Active Substance: POTASSIUM CHLORIDE
  27. PENTAMIDINE [Concomitant]
     Active Substance: PENTAMIDINE
  28. PROTONIX (OMEPRAZOLE) [Concomitant]
     Route: 048
  29. NOXAFIL [Concomitant]
     Active Substance: POSACONAZOLE
     Dosage: 400 MG/ML
     Route: 065
  30. HUMALOG [Concomitant]
     Active Substance: INSULIN LISPRO
  31. AQUAMEPHYTON [Concomitant]
     Active Substance: PHYTONADIONE
  32. TACROLIMUS. [Concomitant]
     Active Substance: TACROLIMUS
     Route: 065
     Dates: start: 20120125, end: 20120219
  33. CYCLOBENZAPRINE [Concomitant]
     Active Substance: CYCLOBENZAPRINE
  34. VFEND [Concomitant]
     Active Substance: VORICONAZOLE
  35. RITUXIMAB [Suspect]
     Active Substance: RITUXIMAB
     Route: 042
     Dates: start: 20130320
  36. ACYCLOVIR. [Concomitant]
     Active Substance: ACYCLOVIR
     Route: 065
  37. ANDROGEL [Concomitant]
     Active Substance: TESTOSTERONE
     Dosage: 1% TRANSDERMAL PACKET, 2 PACKETS DAILY AS DIRECTED.
     Route: 065
  38. CYCLOBENZAPRINE [Concomitant]
     Active Substance: CYCLOBENZAPRINE
     Indication: MUSCLE SPASMS
     Route: 065
  39. LOVENOX [Concomitant]
     Active Substance: ENOXAPARIN SODIUM
     Dosage: FOR INJECTION UNDER THE SKIN.
     Route: 065
  40. PENTAMIDINE [Concomitant]
     Active Substance: PENTAMIDINE
     Dosage: INHALATION
     Route: 065
     Dates: start: 20131023
  41. CRESTOR [Concomitant]
     Active Substance: ROSUVASTATIN CALCIUM
     Route: 065
  42. MEPHYTON [Concomitant]
     Active Substance: PHYTONADIONE
  43. PENICILLIN V POTASSIUM. [Concomitant]
     Active Substance: PENICILLIN V POTASSIUM
  44. RITUXIMAB [Suspect]
     Active Substance: RITUXIMAB
     Route: 042
     Dates: start: 20130110
  45. BIOTENE MOUTHWASH [Concomitant]
     Dosage: SWISH AND APIT AS NEEDED
     Route: 065
  46. NYSTATIN. [Concomitant]
     Active Substance: NYSTATIN
  47. TIZANIDINE (TIZANIDINE) [Concomitant]
     Active Substance: TIZANIDINE
  48. RITUXIMAB [Suspect]
     Active Substance: RITUXIMAB
     Indication: ACUTE MYELOID LEUKAEMIA
     Dosage: LAST DOSE GIVEN ON 12/SEP/2013
     Route: 042
     Dates: start: 20121220
  49. RITUXIMAB [Suspect]
     Active Substance: RITUXIMAB
     Indication: CHRONIC GRAFT VERSUS HOST DISEASE
     Dosage: LAST DOSE
     Route: 042
     Dates: end: 20131217
  50. COUMADIN [Concomitant]
     Active Substance: WARFARIN SODIUM
     Route: 048
  51. ATIVAN [Concomitant]
     Active Substance: LORAZEPAM
     Indication: NAUSEA
     Route: 065
  52. FLUDROCORTISONE [Concomitant]
     Active Substance: FLUDROCORTISONE
  53. NOXAFIL [Concomitant]
     Active Substance: POSACONAZOLE
     Dosage: 200 MG/ 5 ML,  10 ML
     Route: 048
  54. LEVOTHYROXINE [Concomitant]
     Active Substance: LEVOTHYROXINE
  55. RESTORIL (UNITED STATES) [Concomitant]
  56. COLACE [Concomitant]
     Active Substance: DOCUSATE SODIUM

REACTIONS (10)
  - Pleural effusion [Unknown]
  - Hypotension [Fatal]
  - Pneumonia [Recovered/Resolved]
  - Failure to thrive [Fatal]
  - Leukaemia recurrent [Fatal]
  - Hypoxia [Unknown]
  - Pyrexia [Recovered/Resolved]
  - Dizziness postural [Fatal]
  - Cardio-respiratory arrest [Fatal]
  - Tachycardia [Fatal]

NARRATIVE: CASE EVENT DATE: 20131003
